FAERS Safety Report 4834292-1 (Version None)
Quarter: 2005Q4

REPORT INFORMATION
  Report Type: 
  Country: None (occurrence: None)
  Receive Date: 20051114
  Receipt Date: 20051103
  Transmission Date: 20060501
  Serious: Yes (Other)
  Sender: FDA-Public Use
  Company Number: 2005151342

PATIENT
  Sex: Female
  Weight: 72.5755 kg

DRUGS (7)
  1. GLUCOTROL [Suspect]
     Indication: BLOOD GLUCOSE INCREASED
     Dosage: 40 MG (20 MG, 2 IN 1 D), ORAL
     Route: 048
  2. XALATAN [Concomitant]
  3. PROZAC [Concomitant]
  4. DEPAKOTE [Concomitant]
  5. ACIPHEX [Concomitant]
  6. ACTOS [Concomitant]
  7. TRICOR [Concomitant]

REACTIONS (2)
  - GLAUCOMA [None]
  - TREATMENT NONCOMPLIANCE [None]
